FAERS Safety Report 18234990 (Version 1)
Quarter: 2020Q3

REPORT INFORMATION
  Report Type: Report from Study
  Country: US (occurrence: US)
  Receive Date: 20200905
  Receipt Date: 20200905
  Transmission Date: 20201103
  Serious: Yes (Hospitalization, Other)
  Sender: FDA-Public Use
  Company Number: US-AUROBINDO-AUR-APL-2020-046874

PATIENT
  Sex: Female

DRUGS (2)
  1. PRALATREXATE [Suspect]
     Active Substance: PRALATREXATE
     Indication: PRODUCT USED FOR UNKNOWN INDICATION
     Dosage: 57 MILLIGRAM/ DAY 1 + DAY 8? EVERY 3 WEKS
     Route: 065
  2. KEYTRUDA [Suspect]
     Active Substance: PEMBROLIZUMAB
     Indication: PRODUCT USED FOR UNKNOWN INDICATION
     Dosage: 200 MILLIGRAM, EVERY 3 WEEKS
     Route: 065

REACTIONS (5)
  - Nausea [Unknown]
  - Wound drainage [Unknown]
  - Hypophagia [Unknown]
  - Asthenia [Unknown]
  - Wound complication [Unknown]
